FAERS Safety Report 11394555 (Version 1)
Quarter: 2015Q3

REPORT INFORMATION
  Report Type: Spontaneous
  Country: GB (occurrence: GB)
  Receive Date: 20150819
  Receipt Date: 20150819
  Transmission Date: 20151125
  Serious: Yes (Other)
  Sender: FDA-Public Use
  Company Number: GB-AUROBINDO-AUR-APL-2015-07188

PATIENT

DRUGS (3)
  1. CIPROFLOXACIN. [Suspect]
     Active Substance: CIPROFLOXACIN
     Indication: PYELONEPHRITIS
     Dosage: 500 MG
     Route: 048
     Dates: start: 20150728
  2. TRIMETHOPRIM. [Concomitant]
     Active Substance: TRIMETHOPRIM
     Indication: URINARY TRACT INFECTION
     Dosage: PRIOR TO CIPROFLOXACIN
     Route: 065
  3. NITROFURANTOIN. [Concomitant]
     Active Substance: NITROFURANTOIN
     Indication: URINARY TRACT INFECTION
     Dosage: PRIOR TO CIPROFLOXACIN
     Route: 065

REACTIONS (7)
  - Paraesthesia [Unknown]
  - Acute polyneuropathy [Unknown]
  - Sensory disturbance [Unknown]
  - Muscular weakness [Unknown]
  - Burning sensation [Unknown]
  - Pain [Unknown]
  - Condition aggravated [Unknown]
